FAERS Safety Report 6384107-8 (Version None)
Quarter: 2009Q4

REPORT INFORMATION
  Report Type: 
  Country: None (occurrence: None)
  Receive Date: 20091001
  Receipt Date: 20090922
  Transmission Date: 20100525
  Serious: Yes (Other)
  Sender: FDA-Public Use
  Company Number: US-AMGEN-QUU361583

PATIENT
  Sex: Female
  Weight: 58.1 kg

DRUGS (9)
  1. ENBREL [Suspect]
     Indication: RHEUMATOID ARTHRITIS
     Route: 058
     Dates: start: 20020107
  2. IMURAN [Suspect]
  3. METHOTREXATE [Concomitant]
  4. ATROVENT [Concomitant]
     Dates: start: 20070518
  5. CALCIUM [Concomitant]
     Dates: start: 20090623
  6. FOLIC ACID [Concomitant]
     Dates: start: 20020107
  7. PREDNISONE [Concomitant]
     Dates: start: 20080319
  8. PROPOXYPHENE NAPSYLATE W/ ACETAMINOPHEN [Concomitant]
     Dates: start: 20080606
  9. WARFARIN SODIUM [Concomitant]
     Dates: start: 20070814

REACTIONS (6)
  - BRONCHITIS CHRONIC [None]
  - CHRONIC OBSTRUCTIVE PULMONARY DISEASE [None]
  - DYSPNOEA [None]
  - ONYCHOMYCOSIS [None]
  - RASH [None]
  - STAPHYLOCOCCAL INFECTION [None]
